FAERS Safety Report 8158144-7 (Version None)
Quarter: 2012Q1

REPORT INFORMATION
  Report Type: 
  Country: None (occurrence: None)
  Receive Date: 20120222
  Receipt Date: 20120220
  Transmission Date: 20120608
  Serious: Yes (Death, Other)
  Sender: FDA-Public Use
  Company Number: PHHY2012JP014330

PATIENT
  Age: 77 Year
  Sex: Male

DRUGS (2)
  1. IRINOTECAN HCL [Suspect]
     Indication: OESOPHAGEAL CARCINOMA
     Dosage: 60 MG/M2, ON ON DAYS 1 AND 8
  2. CISPLATIN [Suspect]
     Indication: OESOPHAGEAL CARCINOMA
     Dosage: 60 MG/M2, ON DAY 1 OF EACH 4-WEEK CYCLE

REACTIONS (4)
  - DEATH [None]
  - METASTATIC NEOPLASM [None]
  - LEUKOPENIA [None]
  - GENERAL PHYSICAL HEALTH DETERIORATION [None]
